FAERS Safety Report 18630429 (Version 2)
Quarter: 2020Q4

REPORT INFORMATION
  Report Type: Spontaneous
  Country: BE (occurrence: BE)
  Receive Date: 20201217
  Receipt Date: 20201225
  Transmission Date: 20210114
  Serious: Yes (Hospitalization, Other)
  Sender: FDA-Public Use
  Company Number: BE-ASTRAZENECA-2020SF65701

PATIENT
  Age: 59 Year
  Sex: Female
  Weight: 52 kg

DRUGS (2)
  1. TAGRISSO [Suspect]
     Active Substance: OSIMERTINIB
     Indication: NON-SMALL CELL LUNG CANCER
     Dosage: UNKNOWN
     Route: 048
  2. FURADANTINE [Suspect]
     Active Substance: NITROFURANTOIN
     Dosage: UNKNOWN
     Route: 065

REACTIONS (9)
  - Decreased appetite [Unknown]
  - SARS-CoV-2 test negative [Unknown]
  - General physical health deterioration [Unknown]
  - Cystitis [Unknown]
  - Dyspnoea [Unknown]
  - Hepatitis toxic [Recovering/Resolving]
  - Interstitial lung disease [Unknown]
  - Dysgeusia [Unknown]
  - Pyrexia [Unknown]

NARRATIVE: CASE EVENT DATE: 20201119
